FAERS Safety Report 5607647-5 (Version None)
Quarter: 2008Q1

REPORT INFORMATION
  Report Type: 
  Country: None (occurrence: None)
  Receive Date: 20080130
  Receipt Date: 20080123
  Transmission Date: 20080703
  Serious: Yes (Other)
  Sender: FDA-Public Use
  Company Number: US-JNJFOC-20071204643

PATIENT
  Sex: Female
  Weight: 89 kg

DRUGS (13)
  1. REMICADE [Suspect]
     Route: 042
  2. REMICADE [Suspect]
     Route: 042
  3. REMICADE [Suspect]
     Route: 042
  4. REMICADE [Suspect]
     Route: 042
  5. REMICADE [Suspect]
     Route: 042
  6. REMICADE [Suspect]
     Route: 042
  7. REMICADE [Suspect]
     Route: 042
  8. REMICADE [Suspect]
     Indication: COLITIS ULCERATIVE
     Route: 042
  9. MERCAPTOPURINE [Concomitant]
     Indication: COLITIS ULCERATIVE
  10. TOPROL-XL [Concomitant]
     Indication: HYPERTENSION
  11. ZOCOR [Concomitant]
     Indication: BLOOD CHOLESTEROL INCREASED
  12. NORVASC [Concomitant]
     Indication: HYPERTENSION
  13. PREDNISONE TAB [Concomitant]
     Indication: PREMEDICATION

REACTIONS (8)
  - CHILLS [None]
  - DIZZINESS [None]
  - FLUSHING [None]
  - INFUSION RELATED REACTION [None]
  - PALLOR [None]
  - PALPITATIONS [None]
  - RESPIRATORY DISORDER [None]
  - TREMOR [None]
